FAERS Safety Report 11753909 (Version 1)
Quarter: 2015Q4

REPORT INFORMATION
  Report Type: Spontaneous
  Country: US (occurrence: US)
  Receive Date: 20151119
  Receipt Date: 20151119
  Transmission Date: 20160304
  Serious: No
  Sender: FDA-Public Use
  Company Number: US-VERTEX PHARMACEUTICALS-2015-005200

PATIENT
  Age: 24 Year
  Sex: Male

DRUGS (1)
  1. ORKAMBI [Suspect]
     Active Substance: IVACAFTOR\LUMACAFTOR
     Indication: CYSTIC FIBROSIS
     Dosage: 2 DF, BID (200/125 MG)
     Route: 048
     Dates: start: 20151013

REACTIONS (3)
  - Respiratory tract infection [Unknown]
  - Respiration abnormal [Unknown]
  - Dyspnoea [Unknown]
